FAERS Safety Report 5236750-7 (Version None)
Quarter: 2007Q1

REPORT INFORMATION
  Report Type: 
  Country: None (occurrence: None)
  Receive Date: 20070213
  Receipt Date: 20070202
  Transmission Date: 20070707
  Serious: Yes (Other)
  Sender: FDA-Public Use
  Company Number: PHFR2007GB00599

PATIENT
  Age: 49 Year
  Sex: Female

DRUGS (2)
  1. INSULIN [Concomitant]
     Indication: DIABETES MELLITUS INSULIN-DEPENDENT
     Route: 030
  2. CLOZARIL [Suspect]
     Indication: SCHIZOPHRENIA
     Dosage: 200MG/DAY
     Route: 048
     Dates: start: 20061026, end: 20070101

REACTIONS (8)
  - ARTHRALGIA [None]
  - BLISTER [None]
  - CHAPPED LIPS [None]
  - DIABETES MELLITUS INADEQUATE CONTROL [None]
  - HYPERSENSITIVITY [None]
  - OEDEMA PERIPHERAL [None]
  - OPEN WOUND [None]
  - SKIN EXFOLIATION [None]
